FAERS Safety Report 5535700-3 (Version None)
Quarter: 2007Q4

REPORT INFORMATION
  Report Type: 
  Country: None (occurrence: None)
  Receive Date: 20071206
  Receipt Date: 20070306
  Transmission Date: 20080405
  Serious: Yes (Other)
  Sender: FDA-Public Use
  Company Number: US-AMGEN-STX206744

PATIENT
  Sex: Female
  Weight: 79 kg

DRUGS (12)
  1. ENBREL [Suspect]
     Indication: RHEUMATOID ARTHRITIS
     Route: 058
     Dates: start: 20060911
  2. PLAVIX [Concomitant]
  3. DIOVAN [Concomitant]
  4. TOPROL-XL [Concomitant]
  5. MAXZIDE [Concomitant]
  6. ZOCOR [Concomitant]
  7. EVISTA [Concomitant]
  8. SYNTHROID [Concomitant]
  9. EVOXAC [Concomitant]
  10. PLAQUENIL [Concomitant]
     Indication: RHEUMATOID ARTHRITIS
  11. FOLIC ACID [Concomitant]
  12. WELLBUTRIN [Concomitant]

REACTIONS (2)
  - HYPERTENSION [None]
  - URINARY TRACT INFECTION [None]
